FAERS Safety Report 11137100 (Version 1)
Quarter: 2015Q2

REPORT INFORMATION
  Report Type: Spontaneous
  Country: US (occurrence: US)
  Receive Date: 20150526
  Receipt Date: 20150526
  Transmission Date: 20150821
  Serious: No
  Sender: FDA-Public Use
  Company Number: US-MALLINCKRODT-T201501287

PATIENT
  Age: 44 Year
  Sex: Female

DRUGS (2)
  1. H.P. ACTHAR [Suspect]
     Active Substance: CORTICOTROPIN
     Indication: SYSTEMIC LUPUS ERYTHEMATOSUS
     Dosage: 40 UNITS, TWICE WKLY
     Route: 065
     Dates: start: 20140609
  2. SEROQUEL [Suspect]
     Active Substance: QUETIAPINE FUMARATE

REACTIONS (2)
  - Rash [Unknown]
  - Alopecia [Recovered/Resolved]

NARRATIVE: CASE EVENT DATE: 2014
